FAERS Safety Report 8995634 (Version 2)
Quarter: 2013Q3

REPORT INFORMATION
  Report Type: Spontaneous
  Country: US (occurrence: US)
  Receive Date: 20130103
  Receipt Date: 20130705
  Transmission Date: 20140515
  Serious: Yes (Other)
  Sender: FDA-Public Use
  Company Number: US-ABBOTT-12P-163-0978467-00

PATIENT
  Age: 57 Year
  Sex: Female
  Weight: 102.15 kg

DRUGS (6)
  1. SYNTHROID [Suspect]
     Indication: THYROIDECTOMY
     Route: 048
     Dates: start: 201112, end: 201208
  2. SYNTHROID [Suspect]
     Indication: HYPOTHYROIDISM
  3. LEVOTHYROXINE [Suspect]
     Indication: THYROIDECTOMY
  4. GLIMEPIRIDE [Concomitant]
     Indication: DIABETES MELLITUS
  5. UNKNOWN BP MEDICATION [Concomitant]
     Indication: PRODUCT USED FOR UNKNOWN INDICATION
  6. MANY SUPPLEMENTS [Concomitant]
     Indication: PRODUCT USED FOR UNKNOWN INDICATION

REACTIONS (7)
  - Thyroid function test abnormal [Unknown]
  - Malaise [Recovered/Resolved]
  - Fatigue [Recovered/Resolved]
  - Adverse reaction [Unknown]
  - Pruritus [Unknown]
  - Irritability [Unknown]
  - Fatigue [Unknown]
